FAERS Safety Report 24357246 (Version 1)
Quarter: 2024Q3

REPORT INFORMATION
  Report Type: Spontaneous
  Country: US (occurrence: US)
  Receive Date: 20240924
  Receipt Date: 20240924
  Transmission Date: 20241017
  Serious: No
  Sender: CELLTRION
  Company Number: US-CELLTRION INC.-2023US018272

PATIENT

DRUGS (1)
  1. INFLECTRA [Suspect]
     Active Substance: INFLIXIMAB-DYYB
     Indication: Product used for unknown indication
     Dosage: UNK
     Route: 065

REACTIONS (6)
  - Adverse reaction [Unknown]
  - Heart rate increased [Unknown]
  - Pyrexia [Unknown]
  - Dizziness [Unknown]
  - Hypersensitivity [Unknown]
  - Drug ineffective [Unknown]
